FAERS Safety Report 9222276 (Version 1)
Quarter: 2013Q1

REPORT INFORMATION
  Report Type: Spontaneous
  Country: US (occurrence: None)
  Receive Date: 20120914
  Receipt Date: 20120914
  Transmission Date: 20140127
  Serious: Yes (Other)
  Sender: FDA-Public Use
  Company Number: JPI-P-020546

PATIENT
  Age: 38 Year
  Sex: Male

DRUGS (11)
  1. XYREM ?(500 MILLIGRAM/MILLILITERS, SOLUTION)(SODIUM OXYBATE) [Suspect]
     Indication: CATAPLEXY
     Route: 048
     Dates: start: 201106
  2. ASPIRIN [Concomitant]
  3. ESOMEPRAZOLE MAGNESIUM [Concomitant]
  4. TELMISARTAN [Concomitant]
  5. BUDESONIDE AND FORMOTEROL FUMARATE DIHYDRATE [Concomitant]
  6. MODAFINIL [Concomitant]
  7. HYDROCHLOROTHIAZIDE [Concomitant]
  8. SIMVASTATIN [Concomitant]
  9. GABAPENTIN [Concomitant]
  10. OXYCODONE HYDROCHLORIDE [Concomitant]
  11. TOPIRAMATE [Concomitant]

REACTIONS (8)
  - Cyst [None]
  - Postoperative wound infection [None]
  - Dizziness [None]
  - Diarrhoea [None]
  - Abnormal dreams [None]
  - Sleep talking [None]
  - Fatigue [None]
  - Confusional state [None]
